FAERS Safety Report 9369778 (Version 1)
Quarter: 2013Q2

REPORT INFORMATION
  Report Type: Spontaneous
  Country: US (occurrence: None)
  Receive Date: 20130625
  Receipt Date: 20130625
  Transmission Date: 20140414
  Serious: Yes (Hospitalization)
  Sender: FDA-Public Use
  Company Number: None

PATIENT
  Age: 22 Year
  Sex: Female
  Weight: 107 kg

DRUGS (2)
  1. RECLIPSEN [Suspect]
     Indication: POLYCYSTIC OVARIES
     Dosage: SEVERAL MONTHS
     Route: 048
  2. RECLIPSEN [Suspect]
     Indication: MENSTRUATION IRREGULAR
     Dosage: SEVERAL MONTHS
     Route: 048

REACTIONS (4)
  - Chest discomfort [None]
  - Fatigue [None]
  - Pulmonary embolism [None]
  - Haemoptysis [None]
